FAERS Safety Report 11871463 (Version 2)
Quarter: 2016Q1

REPORT INFORMATION
  Report Type: Spontaneous
  Country: GB (occurrence: GB)
  Receive Date: 20151228
  Receipt Date: 20160122
  Transmission Date: 20160526
  Serious: Yes (Hospitalization)
  Sender: FDA-Public Use
  Company Number: GB-PFIZER INC-2015457797

PATIENT
  Age: 71 Year
  Sex: Female

DRUGS (13)
  1. TIOTROPIUM [Concomitant]
     Active Substance: TIOTROPIUM
     Dosage: 18 UG, 1X/DAY
  2. DIGOXIN. [Concomitant]
     Active Substance: DIGOXIN
     Dosage: 62.5 UG, 1X/DAY
  3. ISOSORBIDE MONONITRATE. [Concomitant]
     Active Substance: ISOSORBIDE MONONITRATE
     Dosage: 90 MG, 1X/DAY
  4. GLYCERYL TRINITRATE [Concomitant]
     Active Substance: NITROGLYCERIN
     Dosage: 400 UG, UNK
  5. SYMBICORT [Concomitant]
     Active Substance: BUDESONIDE\FORMOTEROL FUMARATE DIHYDRATE
     Dosage: 1 DF, 2X/DAY 400/12
  6. AMLODIPINE BESILATE [Suspect]
     Active Substance: AMLODIPINE BESYLATE
     Dosage: 5 MG, 1X/DAY
     Route: 048
  7. FUROSEMIDE. [Concomitant]
     Active Substance: FUROSEMIDE
     Dosage: 40 MG, 1X/DAY MORNING
  8. ASPIRIN /00002701/ [Concomitant]
     Active Substance: ASPIRIN
     Dosage: 75 MG, 1X/DAY
  9. PERINDOPRIL [Concomitant]
     Active Substance: PERINDOPRIL
     Dosage: 4 MG, 1X/DAY
  10. SALBUTAMOL [Concomitant]
     Active Substance: ALBUTEROL
     Dosage: 100 UG, UNK
  11. ATORVASTATIN [Concomitant]
     Active Substance: ATORVASTATIN
     Dosage: 10 MG, 1X/DAY NOCTE
  12. GLYCEROL [Concomitant]
     Active Substance: GLYCERIN
     Dosage: 4 G, UNK
  13. LANSOPRAZOLE. [Concomitant]
     Active Substance: LANSOPRAZOLE
     Dosage: 15 MG, 1X/DAY

REACTIONS (2)
  - Oedema peripheral [Unknown]
  - Chronic obstructive pulmonary disease [Unknown]

NARRATIVE: CASE EVENT DATE: 20151126
